FAERS Safety Report 6107653-0 (Version None)
Quarter: 2009Q1

REPORT INFORMATION
  Report Type: 
  Country: None (occurrence: None)
  Receive Date: 20090309
  Receipt Date: 20090303
  Transmission Date: 20090719
  Serious: Yes (Life-Threatening, Hospitalization)
  Sender: FDA-Public Use
  Company Number: JP-ASTRAZENECA-2009SE01025

PATIENT
  Age: 46 Year
  Sex: Female

DRUGS (1)
  1. PARAPRES [Suspect]
     Indication: HYPERTENSION
     Route: 048
     Dates: end: 20080219

REACTIONS (3)
  - BLOOD CREATININE INCREASED [None]
  - BLOOD UREA INCREASED [None]
  - RENAL FAILURE [None]
